FAERS Safety Report 17740876 (Version 3)
Quarter: 2022Q1

REPORT INFORMATION
  Report Type: Spontaneous
  Country: US (occurrence: US)
  Receive Date: 20200504
  Receipt Date: 20220324
  Transmission Date: 20220423
  Serious: No
  Sender: FDA-Public Use
  Company Number: None

PATIENT
  Sex: Female

DRUGS (3)
  1. VIVELLE-DOT [Suspect]
     Active Substance: ESTRADIOL
     Indication: Menopause
     Dosage: 1 DF (3 1/2 PER WEEK)
     Route: 065
  2. ESTRADIOL [Suspect]
     Active Substance: ESTRADIOL
     Indication: Menopause
     Dosage: UNK
     Route: 065
  3. ESTRADIOL [Suspect]
     Active Substance: ESTRADIOL
     Indication: Product used for unknown indication
     Dosage: UNK(0.1/TWICE A WEEK)
     Route: 065

REACTIONS (11)
  - Metabolic disorder [Unknown]
  - Muscle disorder [Unknown]
  - Myalgia [Unknown]
  - Swelling [Unknown]
  - Abdominal distension [Unknown]
  - Depression [Unknown]
  - Muscle spasms [Unknown]
  - Insomnia [Unknown]
  - Intentional product misuse [Unknown]
  - Blood test abnormal [Unknown]
  - Drug ineffective [Unknown]
